FAERS Safety Report 12446738 (Version 2)
Quarter: 2016Q4

REPORT INFORMATION
  Report Type: Spontaneous
  Country: US (occurrence: US)
  Receive Date: 20160608
  Receipt Date: 20161018
  Transmission Date: 20170207
  Serious: No
  Sender: FDA-Public Use
  Company Number: US-PFIZER INC-2016119299

PATIENT
  Age: 82 Year
  Sex: Male
  Weight: 81 kg

DRUGS (13)
  1. ASPIRIN /00002701/ [Concomitant]
     Active Substance: ASPIRIN
     Dosage: 81 MG, DAILY
     Route: 048
  2. COLACE [Concomitant]
     Active Substance: DOCUSATE SODIUM
     Dosage: 100 MG, 2X/DAY (EVERY EVENING)
     Route: 048
  3. SUTENT [Suspect]
     Active Substance: SUNITINIB MALATE
     Indication: RENAL CELL CARCINOMA
     Dosage: 50 MG, DAILY
     Route: 048
  4. TYLENOL EXTRA STRENGTH [Concomitant]
     Active Substance: ACETAMINOPHEN
     Indication: PAIN
     Dosage: 1000 MG, AS NEEDED (3 TIMES DAILY AS NEEDED )
     Route: 048
  5. LIDEX [Concomitant]
     Active Substance: FLUOCINONIDE
     Indication: SKIN DISORDER
     Dosage: 0.05 %, AS NEEDED (2 TIMES DAILY AS NEEDED)
  6. SUTENT [Suspect]
     Active Substance: SUNITINIB MALATE
     Dosage: 50 MG, 1X/DAY
     Dates: start: 20160302
  7. PROCARDIA XL [Concomitant]
     Active Substance: NIFEDIPINE
     Dosage: 30 MG, DAILY
     Route: 048
  8. VITAMIN D3 [Concomitant]
     Active Substance: CHOLECALCIFEROL
     Dosage: 1000 IU, DAILY
     Route: 048
  9. TOPROL XL [Concomitant]
     Active Substance: METOPROLOL SUCCINATE
     Dosage: 25 MG, DAILY
     Route: 048
  10. FISH OIL [Concomitant]
     Active Substance: FISH OIL
     Dosage: 1000 MG, DAILY
     Route: 048
  11. SUTENT [Suspect]
     Active Substance: SUNITINIB MALATE
     Dosage: 50 MG, UNK, ( 5 DAYS EACH WEEKX4 EVERY 6 WKS)
     Route: 048
     Dates: start: 20160902
  12. LIPITOR [Concomitant]
     Active Substance: ATORVASTATIN CALCIUM
     Dosage: 40 MG, DAILY
     Route: 048
  13. NIZORAL [Concomitant]
     Active Substance: KETOCONAZOLE
     Dosage: 2 %, WEEKLY (3 TIMES WEEKLY)

REACTIONS (2)
  - White blood cell count decreased [Not Recovered/Not Resolved]
  - Platelet count decreased [Not Recovered/Not Resolved]
